FAERS Safety Report 21937481 (Version 3)
Quarter: 2023Q1

REPORT INFORMATION
  Report Type: Spontaneous
  Country: IT (occurrence: IT)
  Receive Date: 20230201
  Receipt Date: 20230216
  Transmission Date: 20230418
  Serious: Yes (Death)
  Sender: FDA-Public Use
  Company Number: None

PATIENT
  Age: 84 Year
  Sex: Male
  Weight: 70 kg

DRUGS (1)
  1. KEYTRUDA [Suspect]
     Active Substance: PEMBROLIZUMAB
     Indication: Desmoplastic melanoma
     Dosage: 400 MG EVERY 6 WEEKS
     Route: 042
     Dates: start: 20221214, end: 20221214

REACTIONS (1)
  - Immune-mediated myasthenia gravis [Fatal]

NARRATIVE: CASE EVENT DATE: 20230104
